FAERS Safety Report 7131623-7 (Version None)
Quarter: 2010Q4

REPORT INFORMATION
  Report Type: 
  Country: None (occurrence: None)
  Receive Date: 20101201
  Receipt Date: 20101125
  Transmission Date: 20110411
  Serious: Yes (Hospitalization)
  Sender: FDA-Public Use
  Company Number: DE-ABBOTT-10P-062-0681551-00

PATIENT
  Sex: Male

DRUGS (5)
  1. TRENANTONE [Suspect]
     Indication: PROSTATIC SPECIFIC ANTIGEN INCREASED
     Route: 058
     Dates: start: 20100325, end: 20100325
  2. TRENANTONE [Suspect]
     Indication: PROSTATE CANCER
  3. MARCUMAR [Concomitant]
     Indication: PRODUCT USED FOR UNKNOWN INDICATION
     Route: 048
  4. ALENDRONIC ACID [Concomitant]
     Indication: OSTEOPOROSIS PROPHYLAXIS
  5. DIOVAN HCT [Concomitant]
     Indication: HYPERTENSION
     Route: 048

REACTIONS (11)
  - BLOOD PRESSURE INCREASED [None]
  - BONE PAIN [None]
  - CARDIOVASCULAR DISORDER [None]
  - HOT FLUSH [None]
  - INTERNATIONAL NORMALISED RATIO DECREASED [None]
  - MUSCULAR WEAKNESS [None]
  - NIGHT SWEATS [None]
  - OSTEOPOROSIS [None]
  - PERIPHERAL EMBOLISM [None]
  - PROTHROMBIN TIME PROLONGED [None]
  - WEIGHT INCREASED [None]
